FAERS Safety Report 19511734 (Version 1)
Quarter: 2021Q3

REPORT INFORMATION
  Report Type: Report from Study
  Country: SE (occurrence: SE)
  Receive Date: 20210709
  Receipt Date: 20210709
  Transmission Date: 20211014
  Serious: Yes (Hospitalization, Other)
  Sender: FDA-Public Use
  Company Number: SE-BAXTER-2021BAX015062

PATIENT
  Age: 20 Year
  Sex: Male
  Weight: 53 kg

DRUGS (5)
  1. IFOSFAMIDE INJECTION 2G [Suspect]
     Active Substance: IFOSFAMIDE
     Indication: OSTEOSARCOMA
     Dosage: DAY 1?3 OF EVERY 21 DAY CYCLE
     Route: 042
     Dates: start: 20210407
  2. LENVATINIB [Suspect]
     Active Substance: LENVATINIB
     Route: 048
     Dates: start: 20210609, end: 20210618
  3. ETOPOSIDE. [Suspect]
     Active Substance: ETOPOSIDE
     Indication: OSTEOSARCOMA
     Dosage: DAY 1?3 OF EVERY 21 DAY CYCLE
     Route: 042
     Dates: start: 20210407
  4. LEVAXIN [Concomitant]
     Active Substance: LEVOTHYROXINE SODIUM
     Indication: PRODUCT USED FOR UNKNOWN INDICATION
     Route: 048
     Dates: start: 20210429
  5. LENVATINIB [Suspect]
     Active Substance: LENVATINIB
     Indication: OSTEOSARCOMA
     Dosage: 14 MG/M2; DAY 1?3 OF EVERY 21 DAY CYCLE
     Route: 048
     Dates: start: 20210407, end: 20210524

REACTIONS (2)
  - Febrile neutropenia [Recovering/Resolving]
  - Pneumothorax [Not Recovered/Not Resolved]

NARRATIVE: CASE EVENT DATE: 20210519
